FAERS Safety Report 7492164-0 (Version None)
Quarter: 2011Q2

REPORT INFORMATION
  Report Type: 
  Country: None (occurrence: None)
  Receive Date: 20110519
  Receipt Date: 20101007
  Transmission Date: 20111010
  Serious: No
  Sender: FDA-Public Use
  Company Number: US-NOVEN-ALL1-2010-05253

PATIENT
  Sex: Female
  Weight: 34.014 kg

DRUGS (2)
  1. DAYTRANA [Suspect]
     Dosage: 10 MG, 1X/DAY:QD
     Route: 062
     Dates: start: 20100401, end: 20100401
  2. DAYTRANA [Suspect]
     Dosage: UNK MG, (1/2 OF A 10 MG PATCH DAILY)1X/DAY:QD
     Route: 062
     Dates: start: 20100401

REACTIONS (6)
  - DRUG PRESCRIBING ERROR [None]
  - PRODUCT QUALITY ISSUE [None]
  - SOMNOLENCE [None]
  - APPLICATION SITE RASH [None]
  - DERMATITIS CONTACT [None]
  - WRONG TECHNIQUE IN DRUG USAGE PROCESS [None]
